FAERS Safety Report 4900484-6 (Version None)
Quarter: 2006Q1

REPORT INFORMATION
  Report Type: 
  Country: None (occurrence: None)
  Receive Date: 20060203
  Receipt Date: 20060130
  Transmission Date: 20060701
  Serious: Yes (Other)
  Sender: FDA-Public Use
  Company Number: JP-MERCK-0602USA00122

PATIENT
  Age: 37 Year
  Sex: Male

DRUGS (4)
  1. COZAAR [Suspect]
     Indication: DIABETIC NEPHROPATHY
     Route: 048
     Dates: start: 20020104, end: 20051213
  2. PERSANTIN [Concomitant]
     Route: 065
  3. DAONIL [Concomitant]
     Route: 048
  4. ZYLORIC [Concomitant]
     Route: 048

REACTIONS (1)
  - BLOOD CREATINE PHOSPHOKINASE INCREASED [None]
